FAERS Safety Report 6381363-7 (Version None)
Quarter: 2009Q3

REPORT INFORMATION
  Report Type: 
  Country: None (occurrence: None)
  Receive Date: 20090929
  Receipt Date: 20090924
  Transmission Date: 20100115
  Serious: Yes (Other)
  Sender: FDA-Public Use
  Company Number: BR-ABBOTT-09P-020-0597540-00

PATIENT
  Sex: Female
  Weight: 69 kg

DRUGS (4)
  1. DEPAKOTE ER [Suspect]
     Indication: BIPOLAR DISORDER
     Route: 048
     Dates: start: 20040101
  2. TRILEPTAL [Concomitant]
     Indication: DEPRESSION
     Route: 048
  3. INDAPEN [Concomitant]
     Indication: HYPERTENSION
     Route: 048
     Dates: start: 20070101
  4. ENALAPRIL MALEATE [Concomitant]
     Indication: HYPERTENSION
     Route: 048

REACTIONS (6)
  - AGITATION [None]
  - AMNESIA [None]
  - NERVOUSNESS [None]
  - ROAD TRAFFIC ACCIDENT [None]
  - SOMNOLENCE [None]
  - URINARY INCONTINENCE [None]
